FAERS Safety Report 7951848-8 (Version None)
Quarter: 2011Q4

REPORT INFORMATION
  Report Type: 
  Country: None (occurrence: None)
  Receive Date: 20111130
  Receipt Date: 20111130
  Transmission Date: 20120403
  Serious: Yes (Other)
  Sender: FDA-Public Use
  Company Number: None

PATIENT
  Sex: Female

DRUGS (1)
  1. MULTI-VITAMIN [Suspect]
     Indication: VITAMIN SUPPLEMENTATION
     Dosage: CHEW 1 TABLET DAILY
     Route: 048
     Dates: start: 20111102

REACTIONS (3)
  - RETCHING [None]
  - PRODUCT TASTE ABNORMAL [None]
  - PRODUCT ODOUR ABNORMAL [None]
